FAERS Safety Report 5132799-3 (Version None)
Quarter: 2006Q4

REPORT INFORMATION
  Report Type: 
  Country: None (occurrence: None)
  Receive Date: 20061017
  Receipt Date: 20061010
  Transmission Date: 20070319
  Serious: Yes (Hospitalization, Other)
  Sender: FDA-Public Use
  Company Number: HQWYE990112OCT06

PATIENT
  Age: 44 Year
  Sex: Male

DRUGS (2)
  1. ADVIL [Suspect]
     Indication: PHARYNGITIS
     Dosage: 400 MG 1X PER 1 DAY ORAL
     Route: 048
     Dates: start: 20060812, end: 20060812
  2. AMOXICILLIN [Suspect]
     Indication: PHARYNGITIS
     Dosage: 500 MG 2X PER 1 DAY ORAL
     Route: 048
     Dates: start: 20060812, end: 20060812

REACTIONS (9)
  - ABDOMINAL PAIN UPPER [None]
  - ANAPHYLACTIC REACTION [None]
  - CONJUNCTIVITIS [None]
  - ERYTHEMA [None]
  - HYPERHIDROSIS [None]
  - HYPOTENSION [None]
  - MALAISE [None]
  - OXYGEN SATURATION DECREASED [None]
  - PRURITUS [None]
